FAERS Safety Report 15467500 (Version 1)
Quarter: 2018Q4

REPORT INFORMATION
  Report Type: Report from Study
  Country: TW (occurrence: TW)
  Receive Date: 20181005
  Receipt Date: 20181005
  Transmission Date: 20190204
  Serious: Yes (Death, Other)
  Sender: FDA-Public Use
  Company Number: TW-ROCHE-2193396

PATIENT

DRUGS (7)
  1. CYCLOSPORINE. [Suspect]
     Active Substance: CYCLOSPORINE
     Indication: SYSTEMIC LUPUS ERYTHEMATOSUS
     Route: 065
  2. RITUXIMAB. [Suspect]
     Active Substance: RITUXIMAB
     Indication: SYSTEMIC LUPUS ERYTHEMATOSUS
     Dosage: DOSE: TWO DOSES OF 500-1000 MG EVERY TWO WEEKS, FOUR DOSES ANNUALLY
     Route: 042
  3. AZATHIOPRINE. [Suspect]
     Active Substance: AZATHIOPRINE
     Indication: SYSTEMIC LUPUS ERYTHEMATOSUS
     Route: 065
  4. PREDNISOLONE. [Suspect]
     Active Substance: PREDNISOLONE
     Indication: SYSTEMIC LUPUS ERYTHEMATOSUS
     Route: 065
  5. METHYLPREDNISOLONE. [Suspect]
     Active Substance: METHYLPREDNISOLONE
     Indication: SYSTEMIC LUPUS ERYTHEMATOSUS
     Dosage: DOSE: 500-1000 MG/DAY FOR AT MOST THREE DAYS
     Route: 065
  6. MYCOPHENOLATE MOFETIL. [Suspect]
     Active Substance: MYCOPHENOLATE MOFETIL
     Indication: SYSTEMIC LUPUS ERYTHEMATOSUS
     Route: 065
  7. CYCLOPHOSPHAMIDE. [Suspect]
     Active Substance: CYCLOPHOSPHAMIDE
     Indication: SYSTEMIC LUPUS ERYTHEMATOSUS
     Route: 065

REACTIONS (23)
  - Septic shock [Fatal]
  - Brain abscess [Fatal]
  - Bacteraemia [Fatal]
  - Cytomegalovirus infection [Fatal]
  - Candida infection [Fatal]
  - Pneumocystis jirovecii pneumonia [Fatal]
  - Infection [Unknown]
  - Candida infection [Unknown]
  - Haemorrhage intracranial [Unknown]
  - Pneumonitis [Fatal]
  - Endophthalmitis [Unknown]
  - Candida pneumonia [Unknown]
  - Brain abscess [Unknown]
  - Peritonitis [Unknown]
  - Abscess [Unknown]
  - Empyema [Unknown]
  - Aspergillus infection [Unknown]
  - Pneumonia [Unknown]
  - Intracranial pressure increased [Fatal]
  - Systemic candida [Fatal]
  - Pneumonia cytomegaloviral [Unknown]
  - Bronchopulmonary aspergillosis [Unknown]
  - Bacterial infection [Unknown]
